FAERS Safety Report 8372705-1 (Version None)
Quarter: 2012Q2

REPORT INFORMATION
  Report Type: 
  Country: None (occurrence: None)
  Receive Date: 20120521
  Receipt Date: 20120518
  Transmission Date: 20120825
  Serious: Yes (Death, Hospitalization)
  Sender: FDA-Public Use
  Company Number: GR-B.I. PHARMACEUTICALS,INC./RIDGEFIELD-2012-EU-02702GB

PATIENT
  Age: 82 Year
  Sex: Female

DRUGS (4)
  1. PRADAXA [Suspect]
     Indication: ATRIAL FIBRILLATION
  2. SINTROM (ADENOCOUMAROL) [Concomitant]
     Indication: ATRIAL FIBRILLATION
  3. AFLEN (TRIFUSAL) [Concomitant]
     Indication: ATRIAL FIBRILLATION
  4. UNSPECIFIED DRUG FOR HYPERCHOLESTEROLEMIA [Concomitant]
     Indication: HYPERCHOLESTEROLAEMIA

REACTIONS (2)
  - PULMONARY OEDEMA [None]
  - PULMONARY EMBOLISM [None]
